FAERS Safety Report 5919830-X (Version None)
Quarter: 2008Q4

REPORT INFORMATION
  Report Type: 
  Country: None (occurrence: None)
  Receive Date: 20081015
  Receipt Date: 20081004
  Transmission Date: 20090506
  Serious: Yes (Other)
  Sender: FDA-Public Use
  Company Number: US-PFIZER INC-2008077391

PATIENT
  Sex: Female
  Weight: 61.2 kg

DRUGS (1)
  1. ESTRING [Suspect]
     Dates: start: 20070818, end: 20080912

REACTIONS (3)
  - DIARRHOEA [None]
  - NAUSEA [None]
  - TOXIC SHOCK SYNDROME [None]
